FAERS Safety Report 12165633 (Version 1)
Quarter: 2016Q1

REPORT INFORMATION
  Report Type: Spontaneous
  Country: US (occurrence: US)
  Receive Date: 20160309
  Receipt Date: 20160309
  Transmission Date: 20160526
  Serious: Yes (Hospitalization)
  Sender: FDA-Public Use
  Company Number: US-FLEET LABORATORIES-1048849

PATIENT
  Age: 35 Month
  Sex: Male

DRUGS (1)
  1. PEDIA-LAX (MAGNESIUM HYDROXIDE) [Suspect]
     Active Substance: MAGNESIUM HYDROXIDE
     Route: 048
     Dates: start: 20160222, end: 20160222

REACTIONS (4)
  - Accidental exposure to product by child [None]
  - Accidental overdose [None]
  - Accidental exposure to product [None]
  - Blood magnesium increased [Recovered/Resolved]

NARRATIVE: CASE EVENT DATE: 20160222
